FAERS Safety Report 7047568-7 (Version None)
Quarter: 2010Q4

REPORT INFORMATION
  Report Type: 
  Country: None (occurrence: None)
  Receive Date: 20101015
  Receipt Date: 20101004
  Transmission Date: 20110411
  Serious: Yes (Hospitalization, Other)
  Sender: FDA-Public Use
  Company Number: US-ELI_LILLY_AND_COMPANY-US201008001863

PATIENT
  Sex: Female
  Weight: 77.72 kg

DRUGS (8)
  1. GEMZAR [Suspect]
     Indication: NON-SMALL CELL LUNG CANCER
     Dosage: 1840 MG, UNK
     Route: 042
     Dates: start: 20100420, end: 20100420
  2. CETUXIMAB [Concomitant]
     Dosage: 736 MG, UNK
     Route: 042
     Dates: start: 20100420
  3. CISPLATIN [Concomitant]
     Dosage: 135 MG, UNK
     Route: 042
     Dates: start: 20100420
  4. DIPHENHYDRAMINE HYDROCHLORIDE [Concomitant]
     Dosage: 50 MG, UNK
     Route: 042
     Dates: start: 20100420
  5. ACETAMINOPHEN [Concomitant]
     Dosage: 650 MG, UNK
     Route: 048
     Dates: start: 20100420
  6. PALONOSETRON HYDROCHLORIDE [Concomitant]
     Dosage: 0.25 MG, UNK
     Route: 042
     Dates: start: 20100420
  7. DEXAMETHASONE SODIUM PHOSPHATE [Concomitant]
     Dosage: 20 MG, UNK
     Route: 042
     Dates: start: 20100420
  8. EMEND TRIFOLD [Concomitant]
     Route: 048
     Dates: start: 20100420

REACTIONS (16)
  - ALANINE AMINOTRANSFERASE INCREASED [None]
  - ALTERED STATE OF CONSCIOUSNESS [None]
  - ASPARTATE AMINOTRANSFERASE INCREASED [None]
  - BLOOD CREATININE INCREASED [None]
  - BLOOD UREA INCREASED [None]
  - BRAIN OEDEMA [None]
  - BRONCHIAL WALL THICKENING [None]
  - CEREBRAL ISCHAEMIA [None]
  - DEHYDRATION [None]
  - DYSPNOEA [None]
  - GLOMERULAR FILTRATION RATE DECREASED [None]
  - HEMIPARESIS [None]
  - HYPOKALAEMIA [None]
  - MALIGNANT NEOPLASM PROGRESSION [None]
  - PANCYTOPENIA [None]
  - WHITE BLOOD CELL COUNT INCREASED [None]
